FAERS Safety Report 11455827 (Version 3)
Quarter: 2016Q2

REPORT INFORMATION
  Report Type: Spontaneous
  Country: US (occurrence: US)
  Receive Date: 20150903
  Receipt Date: 20160503
  Transmission Date: 20160815
  Serious: Yes (Other)
  Sender: FDA-Public Use
  Company Number: US-MDT-ADR-2015-01693

PATIENT
  Age: 31 Year
  Sex: Male

DRUGS (2)
  1. MULTIVITAMIN [Suspect]
     Active Substance: VITAMINS
  2. LIORESAL [Suspect]
     Active Substance: BACLOFEN
     Dosage: 125MCG/DAY

REACTIONS (3)
  - Pocket erosion [Unknown]
  - Implant site extravasation [Unknown]
  - Implant site dehiscence [Unknown]
